FAERS Safety Report 11848991 (Version 5)
Quarter: 2017Q2

REPORT INFORMATION
  Report Type: Report from Study
  Country: CO (occurrence: CO)
  Receive Date: 20151218
  Receipt Date: 20170405
  Transmission Date: 20170829
  Serious: Yes (Hospitalization, Other)
  Sender: FDA-Public Use
  Company Number: PHHY2015CO165392

PATIENT
  Age: 91 Year
  Sex: Female
  Weight: 55 kg

DRUGS (5)
  1. LOSARTAN. [Concomitant]
     Active Substance: LOSARTAN
     Indication: HYPERTENSION
     Dosage: 50 MG, Q12H
     Route: 048
  2. REVOLADE [Suspect]
     Active Substance: ELTROMBOPAG
     Indication: IMMUNE THROMBOCYTOPENIC PURPURA
     Dosage: 25 MG, QD
     Route: 048
     Dates: start: 20150901
  3. REVOLADE [Suspect]
     Active Substance: ELTROMBOPAG
     Dosage: 25 MG (3 TABLETS), QD
     Route: 048
     Dates: start: 20170215
  4. FUROSEMIDE. [Concomitant]
     Active Substance: FUROSEMIDE
     Indication: PRODUCT USED FOR UNKNOWN INDICATION
     Dosage: 40 MG, QD
     Route: 048
  5. PREDNISOLONE. [Concomitant]
     Active Substance: PREDNISOLONE
     Indication: PRODUCT USED FOR UNKNOWN INDICATION
     Dosage: 5 MG, BID
     Route: 048

REACTIONS (10)
  - Pulmonary thrombosis [Unknown]
  - Pulmonary infarction [Unknown]
  - Cholecystitis [Unknown]
  - Dizziness [Unknown]
  - Abdominal distension [Unknown]
  - Back pain [Unknown]
  - Fall [Unknown]
  - Platelet count decreased [Unknown]
  - Joint injury [Unknown]
  - Head injury [Unknown]

NARRATIVE: CASE EVENT DATE: 20151029
